FAERS Safety Report 10289971 (Version 1)
Quarter: 2014Q3

REPORT INFORMATION
  Report Type: Spontaneous
  Country: US (occurrence: US)
  Receive Date: 20140710
  Receipt Date: 20140710
  Transmission Date: 20150326
  Serious: Yes (Other)
  Sender: FDA-Public Use
  Company Number: US-MYLANLABS-2014S1015707

PATIENT
  Age: 44 Year
  Sex: Male

DRUGS (2)
  1. TOPIRAMATE. [Concomitant]
     Active Substance: TOPIRAMATE
     Indication: PROPHYLAXIS
     Route: 065
  2. RIZATRIPTAN [Suspect]
     Active Substance: RIZATRIPTAN
     Indication: HEADACHE
     Dosage: TWO TABLETS OF RIZATRIPTAN PER WEEK FOR LAST FEW WEEKS
     Route: 065

REACTIONS (1)
  - Renal infarct [Recovering/Resolving]
